FAERS Safety Report 12887412 (Version 1)
Quarter: 2016Q4

REPORT INFORMATION
  Report Type: Spontaneous
  Country: TR (occurrence: TR)
  Receive Date: 20161026
  Receipt Date: 20161026
  Transmission Date: 20170207
  Serious: Yes (Hospitalization)
  Sender: FDA-Public Use
  Company Number: TR-ALLERGAN-1673751US

PATIENT
  Age: 80 Year
  Sex: Female

DRUGS (1)
  1. BOTULINUM TOXIN TYPE A UNK [Suspect]
     Active Substance: BOTULINUM TOXIN TYPE A
     Indication: OROMANDIBULAR DYSTONIA
     Dosage: UNK, SINGLE
     Route: 030

REACTIONS (2)
  - Off label use [Unknown]
  - Myasthenia gravis [Recovering/Resolving]
